FAERS Safety Report 5141455-7 (Version None)
Quarter: 2006Q4

REPORT INFORMATION
  Report Type: 
  Country: None (occurrence: None)
  Receive Date: 20061101
  Receipt Date: 20060223
  Transmission Date: 20070319
  Serious: Yes (Life-Threatening, Hospitalization)
  Sender: FDA-Public Use
  Company Number: 2006SE01122

PATIENT
  Age: 26083 Day
  Sex: Male
  Weight: 85 kg

DRUGS (12)
  1. CANDESARTAN CILEXETIL [Suspect]
     Indication: CARDIAC FAILURE CHRONIC
     Route: 048
     Dates: start: 20051201, end: 20060122
  2. CANDESARTAN CILEXETIL [Suspect]
     Route: 048
     Dates: start: 20060126, end: 20060206
  3. CANDESARTAN CILEXETIL [Suspect]
     Route: 048
     Dates: start: 20060207
  4. BISOPROLOL FUMARATE [Concomitant]
     Indication: CARDIAC FAILURE CHRONIC
     Route: 048
     Dates: start: 20020101
  5. HCT [Concomitant]
     Indication: CARDIAC FAILURE CHRONIC
     Route: 048
     Dates: start: 20050123
  6. DIGITOXIN TAB [Concomitant]
     Indication: CARDIAC FAILURE CHRONIC
     Route: 048
     Dates: start: 19940101
  7. ENALAPRIL MALEATE [Concomitant]
     Indication: CARDIAC FAILURE CHRONIC
     Route: 048
     Dates: start: 20050303, end: 20060122
  8. NPH INSULIN [Concomitant]
     Indication: DIABETES MELLITUS
     Route: 058
  9. MARCUMAR [Concomitant]
     Route: 048
  10. ALLOPURINOL [Concomitant]
     Route: 048
     Dates: end: 20060101
  11. ALLOPURINOL [Concomitant]
     Route: 048
     Dates: start: 20060201
  12. METFORMIN HCL [Concomitant]
     Indication: DIABETES MELLITUS
     Route: 048
     Dates: end: 20060101

REACTIONS (19)
  - ARRHYTHMIA [None]
  - BRONCHOPNEUMONIA [None]
  - BUNDLE BRANCH BLOCK RIGHT [None]
  - CARDIAC FAILURE ACUTE [None]
  - CHEYNE-STOKES RESPIRATION [None]
  - CLOSTRIDIUM DIFFICILE COLITIS [None]
  - CONGESTIVE CARDIOMYOPATHY [None]
  - CORONARY ARTERY DISEASE [None]
  - CORONARY ARTERY STENOSIS [None]
  - DYSPNOEA [None]
  - FALL [None]
  - GASTRITIS EROSIVE [None]
  - OEDEMA PERIPHERAL [None]
  - PLEURAL EFFUSION [None]
  - PRURITUS [None]
  - RALES [None]
  - RASH [None]
  - RENAL FAILURE [None]
  - TREATMENT NONCOMPLIANCE [None]
